FAERS Safety Report 10528407 (Version 1)
Quarter: 2014Q4

REPORT INFORMATION
  Report Type: Spontaneous
  Country: CA (occurrence: None)
  Receive Date: 20141017
  Receipt Date: 20141017
  Transmission Date: 20150528
  Serious: No
  Sender: FDA-Public Use
  Company Number: None

PATIENT
  Age: 25 Year
  Sex: Female
  Weight: 61.24 kg

DRUGS (1)
  1. NUVARING [Suspect]
     Active Substance: ETHINYL ESTRADIOL\ETONOGESTREL
     Indication: CONTRACEPTION
     Dosage: 1 RING ONCE VERY MONTH VAGINAL
     Route: 067
     Dates: start: 20120101, end: 20141015

REACTIONS (5)
  - Loss of libido [None]
  - Abdominal pain [None]
  - Depression [None]
  - Menstrual discomfort [None]
  - Dysmenorrhoea [None]

NARRATIVE: CASE EVENT DATE: 20141015
